FAERS Safety Report 18771420 (Version 1)
Quarter: 2021Q1

REPORT INFORMATION
  Report Type: Spontaneous
  Country: US (occurrence: US)
  Receive Date: 20210121
  Receipt Date: 20210121
  Transmission Date: 20210419
  Serious: No
  Sender: FDA-Public Use
  Company Number: US-PERRIGO-20US005402

PATIENT
  Age: 57 Year
  Sex: Female
  Weight: 81.63 kg

DRUGS (1)
  1. IBUPROFEN. [Suspect]
     Active Substance: IBUPROFEN
     Indication: ARTHRITIS
     Dosage: 600 MG, BID
     Route: 048
     Dates: start: 20200328, end: 20200330

REACTIONS (5)
  - Incorrect dose administered [Recovered/Resolved]
  - Glossodynia [Recovered/Resolved]
  - Tongue erythema [Recovered/Resolved]
  - Gingival pain [Recovered/Resolved]
  - Aphthous ulcer [Recovered/Resolved]

NARRATIVE: CASE EVENT DATE: 20200328
